FAERS Safety Report 7409383-1 (Version None)
Quarter: 2011Q2

REPORT INFORMATION
  Report Type: 
  Country: None (occurrence: None)
  Receive Date: 20110412
  Receipt Date: 20110321
  Transmission Date: 20111010
  Serious: Yes (Hospitalization, Other)
  Sender: FDA-Public Use
  Company Number: US-BAYER-201039718NA

PATIENT
  Age: 19 Year
  Sex: Female
  Weight: 104 kg

DRUGS (1)
  1. YASMIN [Suspect]
     Indication: CONTRACEPTION
     Route: 048
     Dates: start: 20041101, end: 20050101

REACTIONS (2)
  - PULMONARY EMBOLISM [None]
  - DYSPNOEA [None]
